FAERS Safety Report 8709062 (Version 3)
Quarter: 2012Q4

REPORT INFORMATION
  Report Type: Report from Study
  Country: CA (occurrence: CA)
  Receive Date: 20120806
  Receipt Date: 20121026
  Transmission Date: 20130627
  Serious: Yes (Hospitalization, Other)
  Sender: FDA-Public Use
  Company Number: CA-ROCHE-1097276

PATIENT
  Sex: Male

DRUGS (6)
  1. VEMURAFENIB [Suspect]
     Indication: METASTATIC MALIGNANT MELANOMA
     Route: 048
     Dates: start: 201207, end: 20120727
  2. VEMURAFENIB [Suspect]
     Route: 048
     Dates: start: 201207, end: 201210
  3. RAMIPRIL [Concomitant]
  4. FENTANYL PATCH [Concomitant]
     Route: 062
  5. DILAUDID [Concomitant]
     Route: 065
  6. AMLODIPINE [Concomitant]

REACTIONS (5)
  - Dehydration [Recovering/Resolving]
  - Infection [Recovering/Resolving]
  - Pneumonia [Recovering/Resolving]
  - Malaise [Not Recovered/Not Resolved]
  - Drug ineffective [Unknown]
